FAERS Safety Report 24077782 (Version 1)
Quarter: 2024Q3

REPORT INFORMATION
  Report Type: Spontaneous
  Country: US (occurrence: US)
  Receive Date: 20240711
  Receipt Date: 20240711
  Transmission Date: 20241017
  Serious: No
  Sender: RECORDATI
  Company Number: US-RECORDATI RARE DISEASE INC.-2024002740

PATIENT

DRUGS (2)
  1. PANHEMATIN [Suspect]
     Active Substance: HEMIN
     Indication: Porphyria
     Dosage: UNK, PRN (FIRST INFUSION)
     Dates: start: 20240402
  2. PANHEMATIN [Suspect]
     Active Substance: HEMIN
     Dosage: UNK, PRN (SECOND INFUSION)
     Dates: start: 20240408

REACTIONS (2)
  - Abdominal pain upper [Unknown]
  - Product use issue [Recovered/Resolved]

NARRATIVE: CASE EVENT DATE: 20240401
